FAERS Safety Report 7321246-9 (Version None)
Quarter: 2011Q1

REPORT INFORMATION
  Report Type: 
  Country: None (occurrence: None)
  Receive Date: 20110228
  Receipt Date: 20110223
  Transmission Date: 20110831
  Serious: Yes (Death)
  Sender: FDA-Public Use
  Company Number: PHHY2010US76431

PATIENT
  Sex: Female
  Weight: 57.596 kg

DRUGS (11)
  1. DARVOCET-N 100 [Concomitant]
  2. GLEEVEC [Suspect]
     Indication: ACUTE LYMPHOCYTIC LEUKAEMIA
     Dosage: 600 MG, QD
     Route: 048
     Dates: start: 20100406, end: 20100515
  3. ZOFRAN [Concomitant]
     Indication: NAUSEA
     Dosage: 8 MG, Q8H
     Route: 048
  4. CLONIDINE [Concomitant]
  5. WELLBATRIN [Concomitant]
  6. NAPROXEN [Concomitant]
  7. LASIX [Concomitant]
  8. BYSTOLIC [Concomitant]
  9. PEPCID [Concomitant]
  10. ALPRAZOLAM [Concomitant]
  11. MEGACE [Concomitant]
     Dosage: 5 ML, QD

REACTIONS (12)
  - CONSTIPATION [None]
  - HYPERHIDROSIS [None]
  - OEDEMA PERIPHERAL [None]
  - DEPRESSION [None]
  - DEATH [None]
  - NERVOUSNESS [None]
  - DYSGEUSIA [None]
  - NAUSEA [None]
  - ANXIETY [None]
  - FATIGUE [None]
  - OCULAR HYPERAEMIA [None]
  - CONTUSION [None]
